FAERS Safety Report 7739173-1 (Version None)
Quarter: 2011Q3

REPORT INFORMATION
  Report Type: 
  Country: None (occurrence: None)
  Receive Date: 20110909
  Receipt Date: 20110830
  Transmission Date: 20111222
  Serious: Yes (Hospitalization, Other)
  Sender: FDA-Public Use
  Company Number: PT-AMGEN-PRTSP2011039701

PATIENT
  Age: 46 Year
  Sex: Male

DRUGS (7)
  1. HUMIRA [Suspect]
     Indication: PSORIASIS
  2. ENBREL [Suspect]
     Indication: PSORIASIS
     Dosage: UNK
     Dates: start: 20060101, end: 20101001
  3. ALLOPURINOL [Concomitant]
     Dosage: UNK
  4. HUMIRA [Suspect]
     Indication: SPONDYLOARTHROPATHY
     Dosage: 40 MG, EVERY 2 WEEKS
     Dates: start: 20101201, end: 20110301
  5. GOLIMUMAB [Suspect]
     Indication: SPONDYLOARTHROPATHY
     Dosage: 50 MG, MONTHLY
     Dates: start: 20110501, end: 20110713
  6. VOLTAREN [Concomitant]
     Dosage: UNK
  7. GOLIMUMAB [Suspect]
     Indication: PSORIASIS

REACTIONS (3)
  - PROGRESSIVE MULTIFOCAL LEUKOENCEPHALOPATHY [None]
  - MONOPARESIS [None]
  - DRUG INEFFECTIVE [None]
